FAERS Safety Report 6973536-7 (Version None)
Quarter: 2010Q3

REPORT INFORMATION
  Report Type: 
  Country: None (occurrence: None)
  Receive Date: 20100909
  Receipt Date: 20100903
  Transmission Date: 20110219
  Serious: Yes (Other)
  Sender: FDA-Public Use
  Company Number: NL-ABBOTT-10P-114-0666829-00

PATIENT
  Sex: Female
  Weight: 63 kg

DRUGS (2)
  1. LUCRIN 3.75 MG [Suspect]
     Indication: ENDOMETRIOSIS
     Route: 058
     Dates: start: 20100423
  2. LIVIAL [Concomitant]
     Indication: MENOPAUSAL SYMPTOMS PROPHYLAXIS
     Route: 048
     Dates: start: 20100423

REACTIONS (1)
  - BENIGN BREAST NEOPLASM [None]
